FAERS Safety Report 6349025-X (Version None)
Quarter: 2009Q3

REPORT INFORMATION
  Report Type: 
  Country: None (occurrence: None)
  Receive Date: 20090911
  Receipt Date: 20090908
  Transmission Date: 20100115
  Serious: Yes (Other)
  Sender: FDA-Public Use
  Company Number: JP-AVENTIS-200912537JP

PATIENT

DRUGS (2)
  1. TAXOTERE [Suspect]
     Route: 041
  2. TS-1 [Concomitant]

REACTIONS (1)
  - SHOCK [None]
